FAERS Safety Report 4737907-1 (Version None)
Quarter: 2005Q3

REPORT INFORMATION
  Report Type: 
  Country: None (occurrence: None)
  Receive Date: 20050809
  Receipt Date: 20050728
  Transmission Date: 20060218
  Serious: Yes (Other)
  Sender: FDA-Public Use
  Company Number: US-JNJFOC-20050704673

PATIENT
  Sex: Male
  Weight: 72.12 kg

DRUGS (2)
  1. REMICADE [Suspect]
     Indication: RHEUMATOID ARTHRITIS
     Dosage: 200 - 400 MG
  2. AZATHIOPRINE [Concomitant]

REACTIONS (2)
  - CARDIAC OPERATION [None]
  - LYMPHOMA [None]
